FAERS Safety Report 21120806 (Version 2)
Quarter: 2022Q3

REPORT INFORMATION
  Report Type: Spontaneous
  Country: JP (occurrence: JP)
  Receive Date: 20220722
  Receipt Date: 20220902
  Transmission Date: 20221027
  Serious: Yes (Other)
  Sender: FDA-Public Use
  Company Number: JP-Eisai-202204546_LEN-EC_P_1

PATIENT
  Age: 60 Year
  Sex: Female

DRUGS (3)
  1. LENVIMA [Suspect]
     Active Substance: LENVATINIB
     Indication: Endometrial cancer
     Dosage: DOSE AND FREQUENCY UNKNOWN
     Route: 048
     Dates: start: 202206, end: 2022
  2. LENVIMA [Suspect]
     Active Substance: LENVATINIB
     Route: 048
     Dates: start: 20220824, end: 202208
  3. KEYTRUDA [Suspect]
     Active Substance: PEMBROLIZUMAB
     Indication: Endometrial cancer
     Route: 041
     Dates: start: 202206

REACTIONS (4)
  - Thrombocytopenia [Unknown]
  - Dysphonia [Unknown]
  - Hypertension [Recovering/Resolving]
  - Hyperthyroidism [Unknown]

NARRATIVE: CASE EVENT DATE: 20220101
